FAERS Safety Report 10362527 (Version 1)
Quarter: 2014Q3

REPORT INFORMATION
  Report Type: Spontaneous
  Country: VN (occurrence: VN)
  Receive Date: 20140805
  Receipt Date: 20140805
  Transmission Date: 20150326
  Serious: Yes (Death, Other)
  Sender: FDA-Public Use
  Company Number: PHHY2014VN095020

PATIENT
  Age: 55 Year
  Sex: Male
  Weight: 68 kg

DRUGS (2)
  1. TASIGNA [Suspect]
     Active Substance: NILOTINIB
     Indication: ACUTE MYELOID LEUKAEMIA
     Dosage: 800 MG, UNK
     Dates: start: 201401
  2. TASIGNA [Suspect]
     Active Substance: NILOTINIB
     Indication: OFF LABEL USE

REACTIONS (4)
  - Malignant neoplasm progression [Fatal]
  - Acute myeloid leukaemia [Fatal]
  - Coma [Unknown]
  - Metastases to central nervous system [Unknown]

NARRATIVE: CASE EVENT DATE: 20140605
